FAERS Safety Report 10364886 (Version 1)
Quarter: 2014Q1

REPORT INFORMATION
  Report Type: Spontaneous
  Country: US (occurrence: None)
  Receive Date: 20140306
  Receipt Date: 20140306
  Transmission Date: 20141002
  Serious: Yes (Hospitalization, Other)
  Sender: FDA-Public Use
  Company Number: 163-21880-13063136

PATIENT
  Age: 66 Year
  Sex: Male
  Weight: 74.8 kg

DRUGS (19)
  1. REVLIMID [Suspect]
     Indication: PLASMA CELL MYELOMA
     Route: 048
     Dates: start: 201211
  2. FENTANYL (POULTICE OR PATCH) [Concomitant]
  3. CEPHALEXIN (CEFALEXIN) (CAPSULES) [Concomitant]
  4. FUROSEMIDE (40 MILLIGRAM, TABLETS) [Concomitant]
  5. CYMBALTA [Concomitant]
  6. AMLODIPINE BESYLATE (AMLODIPINE BESILATE) (5 MILLIGRAM, TABLETS) [Concomitant]
  7. HYDROMORPHONE (4 MILLIGRAM, TABLETS) [Concomitant]
  8. LYRICA (PREGABALIN) (300 MILLIGRAM, CAPSULES) [Concomitant]
  9. LABETALOL HCL (LABETALOL HYDROCHLORIDE) (300 MILLIGRAM, TABLETS) [Concomitant]
  10. ADVAIR (SERETIDE MITE) (UNKNOWN) [Concomitant]
  11. NEXIUM DR (ESOMEPRAZOLE) (40 MILLIGRAM, CAPSULES) [Concomitant]
  12. ASPIRIN (ACETYLSALICYLIC ACID) (325 MILLIGRAM, TABLETS) [Concomitant]
  13. HYDROCODONE/ACETAMINOPHEN (REMEDEINE) (UNKNOWN) [Concomitant]
  14. MULTIVITAMINS (TABLETS) [Concomitant]
  15. SPIRIVA CP-HANDIHALER (TIOTROPIUM BROMIDE) (INHALANT) [Concomitant]
  16. MIRALAX (MACROGOL) (POWDER) [Concomitant]
  17. NIACIN (NICOTINIC ACID) (500 MILLIGRAM, CAPSULES) [Concomitant]
  18. BACTRIM DS (BACTRIM) (TABLETS) [Concomitant]
  19. ALBUTEROL SULF HFA (SALBUTAMOL SULFATE) (INHALANT) [Concomitant]

REACTIONS (6)
  - Pneumonia [None]
  - White blood cell count decreased [None]
  - Red blood cell count decreased [None]
  - Rash [None]
  - Hypoaesthesia [None]
  - Muscle spasms [None]
